FAERS Safety Report 6491048-4 (Version None)
Quarter: 2009Q4

REPORT INFORMATION
  Report Type: 
  Country: None (occurrence: None)
  Receive Date: 20091208
  Receipt Date: 20091123
  Transmission Date: 20100525
  Serious: Yes (Hospitalization)
  Sender: FDA-Public Use
  Company Number: 233498J09USA

PATIENT
  Age: 54 Year
  Sex: Female

DRUGS (2)
  1. REBIF [Suspect]
     Indication: MULTIPLE SCLEROSIS
     Dosage: 8.8 MCG, 3 IN 1 WEEKS, SUBCUTANEOUS
     Route: 058
     Dates: start: 20091112, end: 20091116
  2. BACLOFEN [Suspect]
     Dates: start: 20091117

REACTIONS (9)
  - CRYING [None]
  - DEPRESSION [None]
  - FALL [None]
  - INFLUENZA LIKE ILLNESS [None]
  - LETHARGY [None]
  - MOVEMENT DISORDER [None]
  - NAUSEA [None]
  - SOMNOLENCE [None]
  - VOMITING [None]
